FAERS Safety Report 9650803 (Version 1)
Quarter: 2013Q4

REPORT INFORMATION
  Report Type: Other
  Country: DE (occurrence: DE)
  Receive Date: 20131029
  Receipt Date: 20131029
  Transmission Date: 20140711
  Serious: Yes (Congenital Anomaly, Other)
  Sender: FDA-Public Use
  Company Number: DE-LUPIN PHARMACEUTICALS INC.-E2B_00001381

PATIENT
  Age: 1 Day
  Sex: Female
  Weight: 1.72 kg

DRUGS (4)
  1. LAMOTRIGIN [Suspect]
     Indication: BORDERLINE PERSONALITY DISORDER
     Route: 064
     Dates: start: 20071221, end: 20080802
  2. PAROXETIN [Suspect]
     Indication: BORDERLINE PERSONALITY DISORDER
     Route: 064
     Dates: start: 20071221, end: 20080802
  3. CHLORPROTHIXEN [Concomitant]
     Indication: DEPRESSION
     Route: 064
     Dates: start: 20071221, end: 20080201
  4. FOLIO FORTE [Concomitant]
     Indication: PROPHYLAXIS OF NEURAL TUBE DEFECT
     Route: 064
     Dates: start: 20080126, end: 20080802

REACTIONS (6)
  - Atrial septal defect [Unknown]
  - Anaemia [Unknown]
  - Jaundice [Unknown]
  - Neonatal behavioural syndrome [Unknown]
  - Ventricular septal defect [Unknown]
  - Foetal exposure during pregnancy [Unknown]
